FAERS Safety Report 9662927 (Version 2)
Quarter: 2013Q4

REPORT INFORMATION
  Report Type: Spontaneous
  Country: US (occurrence: US)
  Receive Date: 20131031
  Receipt Date: 20131031
  Transmission Date: 20140711
  Serious: No
  Sender: FDA-Public Use
  Company Number: US-PURDUE-USA-2010-0049954

PATIENT
  Age: 43 Year
  Sex: Male

DRUGS (1)
  1. OXYCONTIN (NDA 22-272) [Suspect]
     Indication: PAIN
     Dosage: 160 MG, BID
     Route: 048
     Dates: start: 201009

REACTIONS (10)
  - Pain [Unknown]
  - Abdominal pain upper [Unknown]
  - Malaise [Unknown]
  - Therapeutic response delayed [Unknown]
  - Headache [Recovered/Resolved]
  - Constipation [Unknown]
  - Vomiting [Recovered/Resolved]
  - Dyspepsia [Unknown]
  - Abdominal distension [Unknown]
  - Abdominal discomfort [Recovered/Resolved]
